FAERS Safety Report 25717771 (Version 1)
Quarter: 2025Q3

REPORT INFORMATION
  Report Type: Spontaneous
  Country: JP (occurrence: JP)
  Receive Date: 20250822
  Receipt Date: 20250822
  Transmission Date: 20251021
  Serious: Yes (Hospitalization)
  Sender: EISAI
  Company Number: JP-Eisai-202301205_LEN-RCC_P_1

PATIENT
  Age: 78 Year
  Sex: Female

DRUGS (7)
  1. LENVIMA [Suspect]
     Active Substance: LENVATINIB
     Indication: Renal cell carcinoma recurrent
     Dates: start: 20230412, end: 20230424
  2. LENVIMA [Suspect]
     Active Substance: LENVATINIB
     Dates: start: 20230510, end: 20230607
  3. LENVIMA [Suspect]
     Active Substance: LENVATINIB
     Dates: start: 202306, end: 202308
  4. LENVIMA [Suspect]
     Active Substance: LENVATINIB
     Dates: start: 20250520
  5. LENVIMA [Suspect]
     Active Substance: LENVATINIB
     Dates: start: 2025
  6. KEYTRUDA [Suspect]
     Active Substance: PEMBROLIZUMAB
     Indication: Renal cell carcinoma recurrent
     Dates: start: 20230412, end: 20230509
  7. AMLODIPINE [Concomitant]
     Active Substance: AMLODIPINE BESYLATE
     Indication: Hypertension
     Dates: start: 202304

REACTIONS (4)
  - Blood alkaline phosphatase increased [Recovering/Resolving]
  - Gamma-glutamyltransferase increased [Recovering/Resolving]
  - Hypertension [Recovering/Resolving]
  - Pain in extremity [Recovered/Resolved]

NARRATIVE: CASE EVENT DATE: 20230401
